FAERS Safety Report 7326068-0 (Version None)
Quarter: 2011Q1

REPORT INFORMATION
  Report Type: 
  Country: None (occurrence: None)
  Receive Date: 20110302
  Receipt Date: 20110224
  Transmission Date: 20110831
  Serious: Yes (Hospitalization)
  Sender: FDA-Public Use
  Company Number: US-ROCHE-639407

PATIENT
  Sex: Female
  Weight: 76.2 kg

DRUGS (29)
  1. JANUVIA [Concomitant]
  2. LISINOPRIL [Concomitant]
  3. NOVOLOG [Concomitant]
     Dosage: DRUG: NOVOLOG SLIDING SCALE, TDD: 1 UINT
  4. PHENERGAN [Concomitant]
  5. ELAVIL [Concomitant]
  6. PEGINTERFERON ALFA-2A [Suspect]
     Dosage: LAST DOSE PRIOR TO SAE  19 FEB 2010
     Route: 058
     Dates: start: 20090707
  7. ASPIRIN [Concomitant]
     Dosage: DRUG REPORTEDAS CHILD ASPIRIN
  8. PREVACID [Concomitant]
  9. PEGINTERFERON ALFA-2A [Suspect]
     Dosage: LAST DOSE: 05 JUNE 2009 DRUG TEMPORARILY INTERRUPTED: 10 JUNE 2009
     Route: 058
     Dates: start: 20090501, end: 20090610
  10. RIBAVIRIN [Suspect]
     Dosage: LAST DOSE: 10 JUNE 2009 FREQUENCY: QD
     Route: 048
     Dates: start: 20090501, end: 20090610
  11. IMITREX [Concomitant]
     Dosage: TAKE WHEN REQUIRED
  12. FENOFIBRATE [Concomitant]
  13. LANTUS [Concomitant]
  14. LORATADINE [Concomitant]
     Dosage: DRUG: LORATAB, TDD: 20
  15. SUMATRIPTAN AND NAPROXEN SODIUM [Concomitant]
  16. LAMOTRIGINE [Concomitant]
     Dosage: DRUG: LAMICTAL
  17. ESCITALOPRAM [Concomitant]
     Dosage: DRUG REPORTED AS LEXAPRO
     Dates: start: 20090929
  18. ACTOS [Concomitant]
  19. LEXAPRO [Concomitant]
  20. HUMULIN 70/30 [Concomitant]
     Dosage: TDD REPORTED AS 70/30
  21. IBUPROFEN [Concomitant]
  22. LORATADINE [Concomitant]
     Dosage: DRUG: CLARITIN
  23. RIBAVIRIN [Suspect]
     Dosage: LAST DOSE PRIOR TO SAE  25 FEB 2010
     Route: 048
     Dates: start: 20090707
  24. ATENOLOL [Concomitant]
  25. ULTRAM [Concomitant]
  26. AMITRIPTYLINE HCL [Concomitant]
     Dosage: DRUG: ELAVIL
  27. K-DUR [Concomitant]
  28. RAMIPRIL [Concomitant]
  29. LOPRESSOR [Concomitant]

REACTIONS (3)
  - DIABETIC KETOACIDOSIS [None]
  - HYPERGLYCAEMIA [None]
  - BLOOD GLUCOSE INCREASED [None]
